FAERS Safety Report 5676108-X (Version None)
Quarter: 2008Q1

REPORT INFORMATION
  Report Type: 
  Country: None (occurrence: None)
  Receive Date: 20080321
  Receipt Date: 20080313
  Transmission Date: 20080703
  Serious: Yes (Other)
  Sender: FDA-Public Use
  Company Number: PHHY2008BR03308

PATIENT
  Age: 31 Year
  Sex: Male
  Weight: 82 kg

DRUGS (2)
  1. TOFRANIL [Suspect]
     Indication: DEPRESSION
     Dosage: 1 DF, QHS
     Route: 048
     Dates: start: 20070801
  2. TOFRANIL [Suspect]
     Route: 048
     Dates: start: 20080307

REACTIONS (5)
  - BURNING SENSATION [None]
  - DEPRESSION [None]
  - MUSCLE RIGIDITY [None]
  - PAIN IN EXTREMITY [None]
  - VEIN DISORDER [None]
